FAERS Safety Report 5501471-X (Version None)
Quarter: 2007Q4

REPORT INFORMATION
  Report Type: 
  Country: None (occurrence: None)
  Receive Date: 20071023
  Receipt Date: 20061116
  Transmission Date: 20080405
  Serious: Yes (Life-Threatening, Hospitalization)
  Sender: FDA-Public Use
  Company Number: 32292

PATIENT
  Age: 64 Year
  Sex: Male

DRUGS (21)
  1. CYTARABINE [Suspect]
     Indication: MYELOID LEUKAEMIA
     Dosage: 200MG/IV/DAILY
     Route: 042
     Dates: start: 20030402
  2. DAUNORUBICIN HCL [Suspect]
     Indication: MYELOID LEUKAEMIA
     Dosage: 100MG/IV/DAILY
     Route: 042
     Dates: start: 20030402, end: 20030404
  3. CEFEPIME [Suspect]
     Dosage: 1 GRAM 1 DAY IV
     Route: 042
     Dates: start: 20030412, end: 20030417
  4. ACETAMINOPHEN [Suspect]
     Indication: PAIN
     Dosage: 3 GRAM 1 DAY ORAL
     Route: 048
     Dates: start: 20030411, end: 20030411
  5. FLUCONAZOLE [Suspect]
     Indication: PROPHYLAXIS
     Dosage: 400 MILLIGRAM 1 DAY ORAL
     Route: 048
     Dates: start: 20030407
  6. ALLOPURINOL [Suspect]
     Dosage: 300 MILLIGRAM 1 DAY ORAL
     Route: 048
     Dates: start: 20030326, end: 20030418
  7. DAUNORUBICIN HCL [Suspect]
     Indication: MYELOID LEUKAEMIA
     Dosage: 100 MILLIGRAM 1 DAY IV
     Route: 042
     Dates: start: 20030402, end: 20030404
  8. CYTARABINE [Suspect]
     Indication: MYELOID LEUKAEMIA
     Dosage: 200 MILLIGRAM 1 DAY IV
     Route: 042
     Dates: start: 20030402
  9. SALBUTAMOL (SALBUTAMOL) [Concomitant]
  10. IPRATROPIUM BROMIDE [Concomitant]
  11. THIAMINE (THIAMINE) [Concomitant]
  12. MULTIVITAMINS (MULTIPLE VITAMINS) [Concomitant]
  13. LOPERAMIDE HCL (LOPERAMIDE HCL) [Concomitant]
  14. DEXAMETHASONE TAB [Concomitant]
  15. ONDANSETRON HCL (ONDANSETRON HCL) [Concomitant]
  16. SODIUM BICARBONATE IN PLASTIC CONTAINER [Concomitant]
  17. POTASSIUM CHLORIDE [Concomitant]
  18. FUROSEMIDE [Concomitant]
  19. MYLANTA (ALUM HYROX+MAG HYDROX+SIMETICONE) [Concomitant]
  20. NICOTINE [Concomitant]
  21. METRONIDAZOLE [Concomitant]

REACTIONS (3)
  - HEPATIC ENZYME INCREASED [None]
  - HYPERBILIRUBINAEMIA [None]
  - THROMBOCYTOPENIA [None]
